FAERS Safety Report 17715412 (Version 1)
Quarter: 2020Q2

REPORT INFORMATION
  Report Type: Spontaneous
  Country: US (occurrence: US)
  Receive Date: 20200427
  Receipt Date: 20200427
  Transmission Date: 20200714
  Serious: No
  Sender: FDA-Public Use
  Company Number: US-TEVA-2020-US-1226897

PATIENT
  Sex: Male

DRUGS (2)
  1. LORAZEPAM TEVA [Suspect]
     Active Substance: LORAZEPAM
     Indication: ANXIETY
     Route: 065
  2. LORAZEPAM TEVA [Suspect]
     Active Substance: LORAZEPAM
     Indication: MYALGIA

REACTIONS (2)
  - Peripheral swelling [Unknown]
  - Drug ineffective [Unknown]
